FAERS Safety Report 26049121 (Version 1)
Quarter: 2025Q4

REPORT INFORMATION
  Report Type: Spontaneous
  Country: US (occurrence: US)
  Receive Date: 20251115
  Receipt Date: 20251115
  Transmission Date: 20260118
  Serious: No
  Sender: AMNEAL
  Company Number: US-AMNEAL PHARMACEUTICALS-2025-AMRX-02424

PATIENT
  Sex: Female

DRUGS (1)
  1. ESTRADIOL TRANSDERMAL SYSTEM [Suspect]
     Active Substance: ESTRADIOL
     Indication: Menopause
     Dosage: UNK
     Route: 062

REACTIONS (6)
  - Application site pain [Unknown]
  - Application site erythema [Unknown]
  - Application site irritation [Unknown]
  - Application site discomfort [Unknown]
  - Product adhesion issue [Unknown]
  - Wrong technique in device usage process [Unknown]
